FAERS Safety Report 10402555 (Version 1)
Quarter: 2014Q3

REPORT INFORMATION
  Report Type: Report from Study
  Country: VE (occurrence: VE)
  Receive Date: 20140822
  Receipt Date: 20140822
  Transmission Date: 20150326
  Serious: Yes (Death, Other)
  Sender: FDA-Public Use
  Company Number: VE-ABBVIE-14P-178-1274175-00

PATIENT

DRUGS (1)
  1. HUMIRA [Suspect]
     Active Substance: ADALIMUMAB
     Indication: MATERNAL EXPOSURE TIMING UNSPECIFIED
     Route: 064

REACTIONS (3)
  - Abortion [Fatal]
  - Foetal exposure during pregnancy [Unknown]
  - Cytogenetic abnormality [Unknown]

NARRATIVE: CASE EVENT DATE: 20140724
